FAERS Safety Report 21653019 (Version 1)
Quarter: 2022Q4

REPORT INFORMATION
  Report Type: Spontaneous
  Country: BR (occurrence: BR)
  Receive Date: 20221128
  Receipt Date: 20221128
  Transmission Date: 20230113
  Serious: Yes (Hospitalization, Other)
  Sender: FDA-Public Use
  Company Number: BR-BoehringerIngelheim-2022-BI-204668

PATIENT
  Age: 72 Year
  Sex: Male
  Weight: 85 kg

DRUGS (4)
  1. OFEV [Suspect]
     Active Substance: NINTEDANIB
     Indication: Idiopathic pulmonary fibrosis
     Dosage: AT ABOUT 9 AM AND 9 PM
     Route: 048
     Dates: start: 202202, end: 2022
  2. OFEV [Suspect]
     Active Substance: NINTEDANIB
     Route: 048
  3. OFEV [Suspect]
     Active Substance: NINTEDANIB
     Dosage: AT ABOUT 9 AM AND 9 PM
     Route: 048
     Dates: start: 202211
  4. ENALAPRIL [Concomitant]
     Active Substance: ENALAPRIL
     Indication: Blood pressure measurement
     Dosage: TWICE DAILY

REACTIONS (10)
  - Helicobacter infection [Unknown]
  - Idiopathic pulmonary fibrosis [Unknown]
  - Gastric dilatation [Unknown]
  - Nausea [Unknown]
  - Vomiting [Unknown]
  - Diarrhoea [Unknown]
  - Abdominal pain upper [Unknown]
  - Feeding disorder [Unknown]
  - Pneumonia [Unknown]
  - Motion sickness [Unknown]

NARRATIVE: CASE EVENT DATE: 20220101
